FAERS Safety Report 8976353 (Version 1)
Quarter: 2012Q4

REPORT INFORMATION
  Report Type: 
  Country: BR (occurrence: BR)
  Receive Date: 20121220
  Receipt Date: 20121220
  Transmission Date: 20130627
  Serious: Yes (Other)
  Sender: FDA-Public Use
  Company Number: BR-SHIRE-ALL1-2012-06256

PATIENT
  Sex: Female
  Weight: 56 kg

DRUGS (4)
  1. VENVANSE [Suspect]
     Indication: BIPOLAR DISORDER
     Dosage: 30 mg, Unknown
     Route: 048
  2. VENVANSE [Suspect]
     Indication: ATTENTION DEFICIT/HYPERACTIVITY DISORDER
  3. RIVOTRIL [Suspect]
     Indication: PRODUCT USED FOR UNKNOWN INDICATION
     Dosage: UNK, Unknown
     Route: 065
  4. LAMITOR [Concomitant]
     Indication: AFFECTIVE DISORDER
     Dosage: 200 mg, Unknown
     Route: 065

REACTIONS (12)
  - Suicidal ideation [Unknown]
  - Depression [Unknown]
  - Drug dependence [Unknown]
  - Hangover [Unknown]
  - Malaise [Unknown]
  - Constipation [Unknown]
  - Thirst [Unknown]
  - Headache [Unknown]
  - Nausea [Unknown]
  - Dry mouth [Unknown]
  - Drug dose omission [Unknown]
  - Off label use [Unknown]
